FAERS Safety Report 9508720 (Version 3)
Quarter: 2013Q3

REPORT INFORMATION
  Report Type: Report from Study
  Country: AU (occurrence: AU)
  Receive Date: 20130909
  Receipt Date: 20130916
  Transmission Date: 20140515
  Serious: Yes (Other)
  Sender: FDA-Public Use
  Company Number: AU-GLAXOSMITHKLINE-Z0020827B

PATIENT
  Age: 61 Year
  Sex: Female
  Weight: 80.4 kg

DRUGS (2)
  1. DABRAFENIB [Suspect]
     Indication: MALIGNANT MELANOMA
     Dosage: 150MG TWICE PER DAY
     Route: 048
     Dates: start: 20130417, end: 20130901
  2. TRAMETINIB [Suspect]
     Indication: MALIGNANT MELANOMA
     Dosage: 2MG PER DAY
     Route: 048
     Dates: start: 20130417

REACTIONS (2)
  - Pyrexia [Recovered/Resolved]
  - Chills [Recovered/Resolved]
